FAERS Safety Report 7108167-1 (Version None)
Quarter: 2010Q4

REPORT INFORMATION
  Report Type: 
  Country: None (occurrence: None)
  Receive Date: 20101115
  Receipt Date: 20101115
  Transmission Date: 20110411
  Serious: Yes (Life-Threatening, Hospitalization, Disabling, Other)
  Sender: FDA-Public Use
  Company Number: None

PATIENT
  Sex: Male
  Weight: 57.1532 kg

DRUGS (2)
  1. LIPITOR [Suspect]
     Indication: BLOOD CHOLESTEROL
     Dosage: 40 MG 1 A DAY ORAL A COUPLE OF YEARS
     Route: 048
  2. NIASPAN [Suspect]
     Indication: BLOOD CHOLESTEROL
     Dosage: 1000 MG 2 A DAY ORAL A COUPLE OF YEARS
     Route: 048

REACTIONS (4)
  - ABASIA [None]
  - DYSSTASIA [None]
  - RENAL DISORDER [None]
  - RHABDOMYOLYSIS [None]
